FAERS Safety Report 5814263-9 (Version None)
Quarter: 2008Q3

REPORT INFORMATION
  Report Type: 
  Country: None (occurrence: None)
  Receive Date: 20080717
  Receipt Date: 20080708
  Transmission Date: 20090109
  Serious: Yes (Other)
  Sender: FDA-Public Use
  Company Number: US-ELI_LILLY_AND_COMPANY-US200807001442

PATIENT
  Sex: Male

DRUGS (7)
  1. HUMALOG [Suspect]
     Dosage: UNK, UNK
     Dates: start: 20010101, end: 20070101
  2. HUMALOG [Suspect]
     Dosage: UNK, UNK
     Dates: start: 20070101
  3. SYNTHROID [Concomitant]
  4. LEVAQUIN [Concomitant]
  5. LASIX [Concomitant]
  6. PLAVIX [Concomitant]
  7. HYDROCHLORZIDE [Concomitant]

REACTIONS (7)
  - BLOOD GLUCOSE INCREASED [None]
  - HYPOTHYROIDISM [None]
  - MUSCLE ATROPHY [None]
  - PHLEBITIS [None]
  - PICKWICKIAN SYNDROME [None]
  - RIGHT VENTRICULAR FAILURE [None]
  - WEIGHT DECREASED [None]
